FAERS Safety Report 18363432 (Version 2)
Quarter: 2020Q4

REPORT INFORMATION
  Report Type: Report from Study
  Country: None (occurrence: NL)
  Receive Date: 20201008
  Receipt Date: 20201015
  Transmission Date: 20210114
  Serious: Yes (Death, Other)
  Sender: FDA-Public Use
  Company Number: NL-ABBVIE-19S-114-2732024-00

PATIENT
  Age: 73 Year
  Sex: Male
  Weight: 95 kg

DRUGS (23)
  1. DUODOPA [Suspect]
     Active Substance: CARBIDOPA\LEVODOPA
     Indication: PARKINSON^S DISEASE
     Dosage: CD NIGHT 3.3
     Route: 050
     Dates: start: 20190318, end: 2019
  2. DUODOPA [Suspect]
     Active Substance: CARBIDOPA\LEVODOPA
     Dosage: DAY PUMP: MD 8.0 ML; CD 5.5 ML/HR; ED 2.0 NIGHT PUMP: CD 3.3
     Route: 050
  3. DUODOPA [Suspect]
     Active Substance: CARBIDOPA\LEVODOPA
     Dosage: DAY-PUMP: MD 0.0, CD 5.2 TO 5.5, ED 2.0, NIGHT PUMP: ND 8.0,?CND 3.3, ED 2.0
     Route: 050
     Dates: start: 2019, end: 2019
  4. DUODOPA [Suspect]
     Active Substance: CARBIDOPA\LEVODOPA
     Dosage: MD: 7.5 ML, CD: 5.1 ML/HR, ED: 2.0 ML, CND: 3.3 ML
     Route: 050
  5. QUETIAPINE. [Concomitant]
     Active Substance: QUETIAPINE
     Indication: PRODUCT USED FOR UNKNOWN INDICATION
     Dates: start: 20200421
  6. DUODOPA [Suspect]
     Active Substance: CARBIDOPA\LEVODOPA
     Dosage: MD: 8.0 ML, CD: 4.0 ML/HR, ED: 2.0ML, CND: 2.4 ML
     Route: 050
  7. DUODOPA [Suspect]
     Active Substance: CARBIDOPA\LEVODOPA
     Dosage: MD: 8.0 ML, CD: 4.8 ML/HR, ED: 2.0 ML, CND: 3.0 ML
     Route: 050
  8. DUODOPA [Suspect]
     Active Substance: CARBIDOPA\LEVODOPA
     Dosage: MD: 8.0 ML, CD: 5.0 ML/HR, ED: 2.0 ML, CND: 3.0 ML
     Route: 050
  9. DUODOPA [Suspect]
     Active Substance: CARBIDOPA\LEVODOPA
     Dosage: MD: 7.5 ML, CD: 5.5 ML/HR, ED: 2.0 ML, CND: 3.3 ML
     Route: 050
  10. DUODOPA [Suspect]
     Active Substance: CARBIDOPA\LEVODOPA
     Dosage: MD 8.0, CDD 4.9, ED 2, CDN 3
     Route: 050
     Dates: start: 2019, end: 2019
  11. DUODOPA [Suspect]
     Active Substance: CARBIDOPA\LEVODOPA
     Dosage: MD 7.5, CD DAY 5.1,CD NIGHT 3.5,ED 2.0
     Route: 050
     Dates: start: 2019, end: 2019
  12. DUODOPA [Suspect]
     Active Substance: CARBIDOPA\LEVODOPA
     Dosage: DAY PUMP: MD 8.0 ML; CD.5 ML/HR; ED 2.0 NIGHT PUMP: CD 3.3; ED 2.0
     Route: 050
     Dates: start: 2019
  13. DUODOPA [Suspect]
     Active Substance: CARBIDOPA\LEVODOPA
     Dosage: MD: 8.0 ML, CD: 4.9 ML/HR, ED: 2.0 ML, CND: 3.0 ML
     Route: 050
  14. DUODOPA [Suspect]
     Active Substance: CARBIDOPA\LEVODOPA
     Dosage: MD: 7.5 ML, CD: 5.1 ML/HR, ED: 2.0 ML, CND: 3.5 ML
     Route: 050
  15. RIVASTIGMINE. [Concomitant]
     Active Substance: RIVASTIGMINE
     Indication: PARKINSON^S DISEASE
     Dates: start: 20200421
  16. DUODOPA [Suspect]
     Active Substance: CARBIDOPA\LEVODOPA
     Dosage: OD 8, CDD 4, CDN 2.4, ED 2
     Route: 050
     Dates: start: 2019, end: 2019
  17. DUODOPA [Suspect]
     Active Substance: CARBIDOPA\LEVODOPA
     Dosage: MD 8.0, CDD 5.0, CDN 3.0, ED 2.0
     Route: 050
     Dates: start: 2019, end: 2019
  18. MACROGOL [Concomitant]
     Active Substance: POLYETHYLENE GLYCOLS
     Indication: ABNORMAL FAECES
     Dosage: IF NEEDED
     Route: 065
     Dates: start: 20190430
  19. DUODOPA [Suspect]
     Active Substance: CARBIDOPA\LEVODOPA
     Dosage: OD 8, CDD 4.2, CDN 2.6, ED 2
     Route: 050
     Dates: start: 2019, end: 2019
  20. DUODOPA [Suspect]
     Active Substance: CARBIDOPA\LEVODOPA
     Dosage: MD: 8.0 ML, CD: 4.2 ML/HR, ED: 2.0ML, CND: 2.6 ML
     Route: 050
  21. DUODOPA [Suspect]
     Active Substance: CARBIDOPA\LEVODOPA
     Dosage: MD: 8.0 ML, CD: 5.5 ML/HR, ED: 2.0 ML, CND: 3.3 ML
     Route: 050
  22. ROPINIROL [Concomitant]
     Active Substance: ROPINIROLE
     Indication: PRODUCT USED FOR UNKNOWN INDICATION
     Dates: end: 2019
  23. ROPINIROL [Concomitant]
     Active Substance: ROPINIROLE
     Dosage: DOSE DECREASED
     Dates: start: 2019

REACTIONS (35)
  - Arthralgia [Unknown]
  - On and off phenomenon [Recovered/Resolved]
  - General physical health deterioration [Fatal]
  - Language disorder [Recovered/Resolved]
  - Memory impairment [Not Recovered/Not Resolved]
  - Tremor [Recovered/Resolved]
  - Oedema peripheral [Not Recovered/Not Resolved]
  - Weight decreased [Not Recovered/Not Resolved]
  - Unevaluable event [Recovered/Resolved]
  - Parkinson^s disease [Fatal]
  - Weight decreased [Recovered/Resolved]
  - Hyperkinesia [Not Recovered/Not Resolved]
  - Freezing phenomenon [Not Recovered/Not Resolved]
  - Hallucination [Recovered/Resolved]
  - Hypophagia [Not Recovered/Not Resolved]
  - Tremor [Recovered/Resolved]
  - Stoma site reaction [Recovered/Resolved]
  - Stoma site erythema [Recovered/Resolved]
  - Therapeutic product effect incomplete [Recovered/Resolved]
  - Stoma site reaction [Unknown]
  - Arthralgia [Recovered/Resolved]
  - Poor quality sleep [Recovered/Resolved]
  - Stoma site erythema [Unknown]
  - Medical device site dryness [Unknown]
  - Confusional state [Not Recovered/Not Resolved]
  - Terminal state [Unknown]
  - Stoma site reaction [Recovered/Resolved]
  - Stoma site inflammation [Recovered/Resolved]
  - Muscle rigidity [Not Recovered/Not Resolved]
  - Device use error [Recovered/Resolved]
  - Stoma site discharge [Recovered/Resolved]
  - Hallucination [Not Recovered/Not Resolved]
  - Emotional distress [Not Recovered/Not Resolved]
  - On and off phenomenon [Not Recovered/Not Resolved]
  - Bradykinesia [Not Recovered/Not Resolved]

NARRATIVE: CASE EVENT DATE: 2019
